FAERS Safety Report 10164326 (Version 1)
Quarter: 2014Q2

REPORT INFORMATION
  Report Type: Spontaneous
  Country: US (occurrence: US)
  Receive Date: 20140510
  Receipt Date: 20140510
  Transmission Date: 20141212
  Serious: No
  Sender: FDA-Public Use
  Company Number: US-BRISTOL-MYERS SQUIBB COMPANY-20050613

PATIENT
  Age: 58 Year
  Sex: Female
  Weight: 97.05 kg

DRUGS (4)
  1. BYDUREON [Suspect]
     Indication: TYPE 2 DIABETES MELLITUS
     Route: 058
     Dates: start: 20140109
  2. GLUCOPHAGE [Suspect]
     Dates: start: 20140109
  3. JANUMET [Concomitant]
  4. NOVOLOG [Concomitant]

REACTIONS (1)
  - Blood glucose increased [Not Recovered/Not Resolved]
